FAERS Safety Report 15895693 (Version 3)
Quarter: 2019Q2

REPORT INFORMATION
  Report Type: Spontaneous
  Country: JP (occurrence: JP)
  Receive Date: 20190131
  Receipt Date: 20190501
  Transmission Date: 20190711
  Serious: Yes (Hospitalization, Disabling, Other)
  Sender: FDA-Public Use
  Company Number: JP-PFIZER INC-2019036006

PATIENT
  Age: 13 Year
  Sex: Male
  Weight: 21.8 kg

DRUGS (6)
  1. ENALAPRIL MALEATE. [Concomitant]
     Active Substance: ENALAPRIL MALEATE
     Dosage: 2.5 MG, 1X/DAY
     Route: 048
     Dates: start: 20160914, end: 20180619
  2. ALLOPURINOL. [Concomitant]
     Active Substance: ALLOPURINOL
     Dosage: 50 MG, 2X/DAY
     Route: 048
     Dates: start: 20150401, end: 20180905
  3. GENOTROPIN [Suspect]
     Active Substance: SOMATROPIN
     Indication: DWARFISM
     Dosage: UNK, DAILY (SEVEN TIMES WEEKLY)
     Route: 058
     Dates: start: 20150610
  4. GENOTROPIN [Suspect]
     Active Substance: SOMATROPIN
     Indication: CHRONIC KIDNEY DISEASE
  5. MINIRINMELT [Concomitant]
     Active Substance: DESMOPRESSIN ACETATE
     Dosage: 240 UG, 1X/DAY
     Route: 048
     Dates: start: 20160817, end: 20180908
  6. NESP [Concomitant]
     Active Substance: DARBEPOETIN ALFA
     Dosage: 96 UG, 1X/DAY
     Dates: start: 20180523, end: 20180718

REACTIONS (2)
  - Chronic kidney disease [Not Recovered/Not Resolved]
  - Therapeutic response decreased [Unknown]
